FAERS Safety Report 16644502 (Version 1)
Quarter: 2019Q3

REPORT INFORMATION
  Report Type: Spontaneous
  Country: US (occurrence: US)
  Receive Date: 20190729
  Receipt Date: 20190729
  Transmission Date: 20191004
  Serious: No
  Sender: FDA-Public Use
  Company Number: PHEH2019US031036

PATIENT
  Sex: Male

DRUGS (1)
  1. POLY B SULFATE/TRIMETHOPRIM [Suspect]
     Active Substance: POLYMYXIN B SULFATE\TRIMETHOPRIM
     Indication: CONJUNCTIVITIS
     Dosage: UNK UNK, Q4H (EVERY 4 HOURS FOR 7 DAYS)
     Route: 065
     Dates: start: 20190717, end: 20190723

REACTIONS (3)
  - Eye pruritus [Unknown]
  - Eye irritation [Unknown]
  - Eyelid margin crusting [Unknown]
